FAERS Safety Report 8200731-1 (Version None)
Quarter: 2012Q1

REPORT INFORMATION
  Report Type: 
  Country: None (occurrence: None)
  Receive Date: 20120306
  Receipt Date: 20120223
  Transmission Date: 20120608
  Serious: Yes (Hospitalization)
  Sender: FDA-Public Use
  Company Number: FK201200556

PATIENT
  Age: 71 Year
  Sex: Male
  Weight: 53 kg

DRUGS (10)
  1. IBUPROFEN [Suspect]
     Indication: PAIN
     Dosage: 600 MG, BID, ORAL, 600 MG, TID, ORAL, 1000 MG, 4X1000 MG AT LEAST 1X/WEEK, ORAL
     Route: 048
     Dates: start: 20110123
  2. IBUPROFEN [Suspect]
     Indication: PAIN
     Dosage: 600 MG, BID, ORAL, 600 MG, TID, ORAL, 1000 MG, 4X1000 MG AT LEAST 1X/WEEK, ORAL
     Route: 048
     Dates: start: 20101213, end: 20110123
  3. ASPIRIN [Concomitant]
  4. OMEP(OMEPRAZOLE) [Concomitant]
  5. IBUPROFEN TABLETS [Suspect]
     Indication: PAIN
     Dosage: 200 MG, AT LEAST ONCE WEEKLY, ORAL
     Route: 048
     Dates: start: 20110215, end: 20110318
  6. NOVALGIN (METAMIZOLE SODIUM) [Suspect]
     Indication: PAIN
     Dosage: 1000 MG, 4X1000 MG AT LEAST 1X/WEEK, ORAL
     Route: 048
     Dates: start: 20101213, end: 20110301
  7. RAMIPRIL PLUS (SALUTEC) [Concomitant]
  8. CLINDAMYCIN [Suspect]
     Indication: EXTREMITY NECROSIS
     Dosage: 600 MG, 1X600 MG  DAILY
     Dates: start: 20110125, end: 20110213
  9. RAMIPRIL [Concomitant]
  10. SIMVASTATIN [Concomitant]

REACTIONS (3)
  - RENAL FAILURE ACUTE [None]
  - DEHYDRATION [None]
  - HYPOTENSION [None]
